FAERS Safety Report 16379670 (Version 1)
Quarter: 2019Q2

REPORT INFORMATION
  Report Type: Spontaneous
  Country: US (occurrence: US)
  Receive Date: 20190429
  Receipt Date: 20190429
  Transmission Date: 20190711
  Serious: Yes (Disabling)
  Sender: FDA-Public Use
  Company Number: None

PATIENT
  Age: 58 Year
  Sex: Female
  Weight: 49.05 kg

DRUGS (1)
  1. CIPROFLOXACIN. [Suspect]
     Active Substance: CIPROFLOXACIN
     Indication: SINUSITIS
     Dosage: ?          QUANTITY:1 CAPSULE(S);?
     Route: 048
     Dates: start: 20070223, end: 20070225

REACTIONS (74)
  - Insomnia [None]
  - Disorientation [None]
  - Hallucination, auditory [None]
  - Anxiety [None]
  - Depersonalisation/derealisation disorder [None]
  - Alopecia [None]
  - Dyspnoea [None]
  - Ataxia [None]
  - Peripheral vascular disorder [None]
  - Plantar fasciitis [None]
  - Nerve injury [None]
  - Pathological fracture [None]
  - Osteopenia [None]
  - Arthralgia [None]
  - Tremor [None]
  - Nervous system injury [None]
  - Rotator cuff syndrome [None]
  - Depression [None]
  - Panic attack [None]
  - Temperature intolerance [None]
  - Vitreous floaters [None]
  - Vision blurred [None]
  - Upper motor neurone lesion [None]
  - Pain in extremity [None]
  - Mobility decreased [None]
  - Seizure [None]
  - Craniocervical syndrome [None]
  - Nerve compression [None]
  - Fatigue [None]
  - Tendon pain [None]
  - Tendon injury [None]
  - Hypothyroidism [None]
  - Blood glucose fluctuation [None]
  - Collagen disorder [None]
  - Photosensitivity reaction [None]
  - Abdominal pain [None]
  - Clonus [None]
  - Epicondylitis [None]
  - Fall [None]
  - Fractured sacrum [None]
  - Adverse drug reaction [None]
  - Body temperature increased [None]
  - Irritable bowel syndrome [None]
  - Liver injury [None]
  - Wrist fracture [None]
  - Blindness [None]
  - Paraesthesia [None]
  - Hypoglycaemia [None]
  - Hallucination, olfactory [None]
  - Periarthritis [None]
  - Small fibre neuropathy [None]
  - Hip fracture [None]
  - Cognitive disorder [None]
  - Pain [None]
  - Rhabdomyolysis [None]
  - Joint injury [None]
  - Muscle twitching [None]
  - Chills [None]
  - Central nervous system injury [None]
  - Cartilage injury [None]
  - Feeling abnormal [None]
  - Muscle spasticity [None]
  - Angiopathy [None]
  - Spinal fracture [None]
  - Intracranial pressure increased [None]
  - Balance disorder [None]
  - Muscle spasms [None]
  - Intervertebral disc degeneration [None]
  - Heart rate irregular [None]
  - Deafness [None]
  - Head discomfort [None]
  - Neuralgia [None]
  - Amnesia [None]
  - Diarrhoea [None]

NARRATIVE: CASE EVENT DATE: 20070223
